FAERS Safety Report 7550207-X (Version None)
Quarter: 2011Q2

REPORT INFORMATION
  Report Type: 
  Country: None (occurrence: None)
  Receive Date: 20110615
  Receipt Date: 20110601
  Transmission Date: 20111010
  Serious: Yes (Other)
  Sender: FDA-Public Use
  Company Number: PL-UCBSA-034733

PATIENT
  Age: 36 Year
  Sex: Male

DRUGS (2)
  1. DEPAKENE [Concomitant]
  2. KEPPRA [Suspect]
     Indication: EPILEPSY

REACTIONS (3)
  - CONFUSIONAL STATE [None]
  - DRUG INEFFECTIVE [None]
  - EPILEPSY [None]
